FAERS Safety Report 24131310 (Version 1)
Quarter: 2024Q3

REPORT INFORMATION
  Report Type: Spontaneous
  Country: CA (occurrence: CA)
  Receive Date: 20240724
  Receipt Date: 20240724
  Transmission Date: 20241017
  Serious: Yes (Other)
  Sender: STRIDES
  Company Number: CA-STRIDES ARCOLAB LIMITED-2024SP009073

PATIENT
  Sex: Male

DRUGS (18)
  1. DIAZEPAM [Suspect]
     Active Substance: DIAZEPAM
     Indication: Product used for unknown indication
     Dosage: 20 MILLIGRAM, EVERY 2 HRS (ON DAY 1; RECEIVED TWO DOSES)
     Route: 064
  2. DIAZEPAM [Suspect]
     Active Substance: DIAZEPAM
     Dosage: 20 MILLIGRAM, EVERY 6 HRS (ON DAY 2)
     Route: 064
  3. DIAZEPAM [Suspect]
     Active Substance: DIAZEPAM
     Dosage: 10 MILLIGRAM, EVERY 6 HRS (ON DAY 3 AND 4)
     Route: 064
  4. DIAZEPAM [Suspect]
     Active Substance: DIAZEPAM
     Dosage: 10 MILLIGRAM, EVERY 4 HRS (ON DAY 5)
     Route: 064
  5. DIAZEPAM [Suspect]
     Active Substance: DIAZEPAM
     Dosage: 8 MILLIGRAM, EVERY 4 HOURS (ON DAY 6-9)
     Route: 064
  6. DIAZEPAM [Suspect]
     Active Substance: DIAZEPAM
     Dosage: 8 MILLIGRAM, EVERY 6 HRS (ON DAY 10)
     Route: 064
  7. DIAZEPAM [Suspect]
     Active Substance: DIAZEPAM
     Dosage: 6 MILLIGRAM, EVERY 6 HRS (ON DAY 11)
     Route: 064
  8. DIAZEPAM [Suspect]
     Active Substance: DIAZEPAM
     Dosage: 4 MILLIGRAM, EVERY 6 HRS (ON DAY 12)
     Route: 064
  9. DIAZEPAM [Suspect]
     Active Substance: DIAZEPAM
     Dosage: 2 MILLIGRAM, EVERY 6 HRS (ON DAY 13)
     Route: 064
  10. DIAZEPAM [Suspect]
     Active Substance: DIAZEPAM
     Dosage: 5 MILLIGRAM, PRN
     Route: 064
  11. BACLOFEN [Suspect]
     Active Substance: BACLOFEN
     Indication: Product used for unknown indication
     Dosage: 10 MILLIGRAM, QID (ON DAY 1-2)
     Route: 064
  12. BACLOFEN [Suspect]
     Active Substance: BACLOFEN
     Dosage: 10 MILLIGRAM, TID (THREE TIMES DAILY ON DAY 3)
     Route: 064
  13. BACLOFEN [Suspect]
     Active Substance: BACLOFEN
     Dosage: 10 MILLIGRAM, BID (ON DAY 4)
     Route: 064
  14. BACLOFEN [Suspect]
     Active Substance: BACLOFEN
     Dosage: 10 MILLIGRAM, QD (ON DAY 5)
     Route: 064
  15. SERTRALINE [Suspect]
     Active Substance: SERTRALINE HYDROCHLORIDE
     Indication: Product used for unknown indication
     Dosage: 25 MILLIGRAM, QD
     Route: 064
  16. NICOTINE [Suspect]
     Active Substance: NICOTINE
     Indication: Product used for unknown indication
     Dosage: UNK
     Route: 064
  17. OXYBATE [Suspect]
     Active Substance: OXYBATE
     Indication: Product used for unknown indication
     Dosage: UNK
     Route: 064
  18. METHAMPHETAMINE [Suspect]
     Active Substance: METHAMPHETAMINE
     Indication: Product used for unknown indication
     Dosage: UNK
     Route: 064

REACTIONS (2)
  - Premature baby [Unknown]
  - Foetal exposure during pregnancy [Unknown]
